FAERS Safety Report 4272606-4 (Version None)
Quarter: 2004Q1

REPORT INFORMATION
  Report Type: 
  Country: None (occurrence: None)
  Receive Date: 20040114
  Receipt Date: 20040114
  Transmission Date: 20041129
  Serious: Yes (Disabling)
  Sender: FDA-Public Use
  Company Number: None

PATIENT
  Age: 79 Year
  Sex: Male
  Weight: 75.7507 kg

DRUGS (1)
  1. K-DUR 10 [Suspect]
     Indication: BLOOD POTASSIUM DECREASED
     Dosage: 1 PER DAY

REACTIONS (2)
  - ASTHENIA [None]
  - PHARMACEUTICAL PRODUCT COMPLAINT [None]
